FAERS Safety Report 8605993-4 (Version None)
Quarter: 2012Q3

REPORT INFORMATION
  Report Type: 
  Country: None (occurrence: None)
  Receive Date: 20120820
  Receipt Date: 20120816
  Transmission Date: 20120928
  Serious: Yes (Other)
  Sender: FDA-Public Use
  Company Number: US-PFIZER INC-2012202178

PATIENT
  Age: 47 Year
  Sex: Female
  Weight: 48.98 kg

DRUGS (11)
  1. CHANTIX [Suspect]
     Dosage: UNK
     Route: 048
  2. NEURONTIN [Suspect]
     Indication: MULTIPLE SCLEROSIS
     Dosage: 600 MG, DAILY
     Route: 048
     Dates: start: 20040101
  3. BETASERON [Suspect]
     Indication: MULTIPLE SCLEROSIS
     Dosage: UNK
     Dates: start: 20040101
  4. CHANTIX [Suspect]
     Dosage: UNK
     Route: 048
  5. BETASERON [Suspect]
     Indication: TRIGEMINAL NEURALGIA
  6. HYDROCODONE [Concomitant]
     Indication: PAIN
     Dosage: 10 MG, AS NEEDED
  7. CHANTIX [Suspect]
     Indication: SMOKING CESSATION THERAPY
     Dosage: UNK
     Route: 048
  8. NEURONTIN [Suspect]
     Indication: TRIGEMINAL NEURALGIA
  9. REBIF [Suspect]
     Indication: MULTIPLE SCLEROSIS
     Dosage: 44 UG, 3X/WEEK
     Dates: start: 20040101
  10. REBIF [Suspect]
     Indication: TRIGEMINAL NEURALGIA
  11. ESTRADIOL [Concomitant]
     Indication: MENOPAUSE
     Dosage: UNK

REACTIONS (9)
  - MULTIPLE SCLEROSIS [None]
  - ABNORMAL DREAMS [None]
  - BURNING SENSATION [None]
  - EMOTIONAL DISORDER [None]
  - TRIGEMINAL NEURALGIA [None]
  - CRYING [None]
  - INSOMNIA [None]
  - THINKING ABNORMAL [None]
  - NAUSEA [None]
